FAERS Safety Report 7244952-3 (Version None)
Quarter: 2011Q1

REPORT INFORMATION
  Report Type: 
  Country: None (occurrence: None)
  Receive Date: 20110126
  Receipt Date: 20110117
  Transmission Date: 20110831
  Serious: Yes (Other)
  Sender: FDA-Public Use
  Company Number: US-BAYER-2011-005822

PATIENT
  Sex: Female

DRUGS (2)
  1. MIRENA [Suspect]
     Indication: CONTRACEPTION
     Dosage: 20 A?G/D, CONT
     Route: 015
     Dates: start: 20100723, end: 20101104
  2. MIRENA [Suspect]
     Indication: MENORRHAGIA

REACTIONS (10)
  - VAGINAL ODOUR [None]
  - DEPRESSION [None]
  - DYSPAREUNIA [None]
  - CHEST PAIN [None]
  - ABNORMAL WEIGHT GAIN [None]
  - DIZZINESS [None]
  - HEADACHE [None]
  - GENITAL INFECTION BACTERIAL [None]
  - ABDOMINAL PAIN [None]
  - PELVIC PAIN [None]
